FAERS Safety Report 6632226-0 (Version None)
Quarter: 2010Q1

REPORT INFORMATION
  Report Type: 
  Country: None (occurrence: None)
  Receive Date: 20100312
  Receipt Date: 20100304
  Transmission Date: 20100710
  Serious: Yes (Other)
  Sender: FDA-Public Use
  Company Number: GXKR2010TN02688

PATIENT
  Age: 7 Year
  Sex: Male

DRUGS (1)
  1. SULFAMETHOXAZOLE+TRIMETHOPRIM (NGX) [Suspect]
     Indication: GASTROINTESTINAL INFECTION
     Dosage: UNK
     Route: 065

REACTIONS (14)
  - ACUTE FEBRILE NEUTROPHILIC DERMATOSIS [None]
  - ANAEMIA [None]
  - ASTHENIA [None]
  - BLOOD BLISTER [None]
  - CHILLS [None]
  - CONJUNCTIVAL DISCOLOURATION [None]
  - INFECTION [None]
  - MUCOUS MEMBRANE DISORDER [None]
  - NEUTROPHILIA [None]
  - PYREXIA [None]
  - RASH ERYTHEMATOUS [None]
  - SCAB [None]
  - SKIN LESION [None]
  - SKIN ULCER [None]
